FAERS Safety Report 8806726 (Version 1)
Quarter: 2012Q4

REPORT INFORMATION
  Report Type: 
  Country: ES (occurrence: ES)
  Receive Date: 20120925
  Receipt Date: 20120925
  Transmission Date: 20130627
  Serious: Yes (Other)
  Sender: FDA-Public Use
  Company Number: PHHY2012ES081610

PATIENT
  Sex: Female

DRUGS (4)
  1. RAMIPRIL [Suspect]
     Indication: HYPERTENSION
     Route: 048
  2. CLOPIDOGREL [Concomitant]
     Indication: CEREBROVASCULAR ACCIDENT
     Dosage: 75 mg, daily
  3. ATORVASTATIN [Concomitant]
     Indication: CEREBROVASCULAR ACCIDENT
     Dosage: 20 mg, one at night
  4. OMEPRAZOL [Concomitant]
     Indication: CEREBROVASCULAR ACCIDENT
     Dosage: 20 mg, daily

REACTIONS (5)
  - Dyspepsia [Recovered/Resolved]
  - Glossodynia [Recovered/Resolved]
  - Abdominal distension [Recovered/Resolved]
  - Blood pressure abnormal [Recovered/Resolved]
  - Swollen tongue [Recovered/Resolved]
